FAERS Safety Report 22185913 (Version 1)
Quarter: 2023Q2

REPORT INFORMATION
  Report Type: Spontaneous
  Country: ES (occurrence: ES)
  Receive Date: 20230407
  Receipt Date: 20230407
  Transmission Date: 20230722
  Serious: Yes (Hospitalization, Other)
  Sender: FDA-Public Use
  Company Number: None

PATIENT
  Age: 45 Year
  Sex: Male

DRUGS (2)
  1. TRUVADA [Interacting]
     Active Substance: EMTRICITABINE\TENOFOVIR DISOPROXIL FUMARATE
     Indication: HIV infection CDC category A
     Dosage: UNK UNK, QD
     Route: 065
     Dates: start: 200911
  2. VIRAMUNE [Interacting]
     Active Substance: NEVIRAPINE
     Indication: HIV infection CDC category A
     Dosage: UNK UNK, QD
     Route: 065
     Dates: start: 200911

REACTIONS (10)
  - Pneumonia [Unknown]
  - Pyrexia [Recovered/Resolved]
  - Anaemia [Recovered/Resolved]
  - Kaposi^s sarcoma [Unknown]
  - Pancytopenia [Recovered/Resolved]
  - Lymphadenopathy [Unknown]
  - Hypotension [Unknown]
  - Respiratory failure [Unknown]
  - Hepatosplenomegaly [Unknown]
  - Immune reconstitution inflammatory syndrome [Unknown]

NARRATIVE: CASE EVENT DATE: 20100101
